FAERS Safety Report 16211554 (Version 1)
Quarter: 2019Q2

REPORT INFORMATION
  Report Type: Spontaneous
  Country: US (occurrence: US)
  Receive Date: 20190417
  Receipt Date: 20190417
  Transmission Date: 20190711
  Serious: Yes (Disabling)
  Sender: FDA-Public Use
  Company Number: None

PATIENT
  Age: 58 Year
  Sex: Female
  Weight: 63 kg

DRUGS (4)
  1. VIVELLE [Concomitant]
     Active Substance: ESTRADIOL
  2. LEVOTHYROXINE 50 MCG. [Suspect]
     Active Substance: LEVOTHYROXINE
     Indication: HYPOTHYROIDISM
     Dosage: ?          QUANTITY:1 TABLET(S);?
     Route: 048
     Dates: start: 20190401, end: 20190404
  3. LORAZEPAM. [Concomitant]
     Active Substance: LORAZEPAM
  4. BENADRYL [Concomitant]
     Active Substance: DIPHENHYDRAMINE HYDROCHLORIDE

REACTIONS (10)
  - Anxiety [None]
  - Electrocardiogram QT prolonged [None]
  - Feeling jittery [None]
  - Extra dose administered [None]
  - Affect lability [None]
  - Heart rate increased [None]
  - Palpitations [None]
  - Mania [None]
  - Insomnia [None]
  - Tachyphrenia [None]

NARRATIVE: CASE EVENT DATE: 20190404
